FAERS Safety Report 7201498-6 (Version None)
Quarter: 2010Q4

REPORT INFORMATION
  Report Type: 
  Country: None (occurrence: None)
  Receive Date: 20101229
  Receipt Date: 20101217
  Transmission Date: 20110411
  Serious: Yes (Hospitalization)
  Sender: FDA-Public Use
  Company Number: ES-US-EMD SERONO, INC.-7032261

PATIENT
  Age: 28 Year
  Sex: Female

DRUGS (2)
  1. GONAL-F [Suspect]
     Indication: OVULATION INDUCTION
  2. OVIDREL [Suspect]
     Indication: OVULATION INDUCTION

REACTIONS (3)
  - HETEROTOPIC PREGNANCY [None]
  - SHORTENED CERVIX [None]
  - THREATENED LABOUR [None]
